FAERS Safety Report 13149039 (Version 1)
Quarter: 2017Q1

REPORT INFORMATION
  Report Type: Spontaneous
  Country: US (occurrence: US)
  Receive Date: 20170124
  Receipt Date: 20170124
  Transmission Date: 20170428
  Serious: Yes (Other)
  Sender: FDA-Public Use
  Company Number: None

PATIENT
  Age: 84 Year
  Sex: Male

DRUGS (1)
  1. XTANDI [Suspect]
     Active Substance: ENZALUTAMIDE
     Indication: PROSTATE CANCER
     Dosage: 40MG 4CAP (160) DAILY ORAL
     Route: 048

REACTIONS (2)
  - Diarrhoea [None]
  - Dry skin [None]

NARRATIVE: CASE EVENT DATE: 20170124
